FAERS Safety Report 24579355 (Version 3)
Quarter: 2025Q3

REPORT INFORMATION
  Report Type: Spontaneous
  Country: JP (occurrence: JP)
  Receive Date: 20241105
  Receipt Date: 20250723
  Transmission Date: 20251021
  Serious: Yes (Death, Life-Threatening, Hospitalization, Disabling)
  Sender: ALEXION PHARMACEUTICALS
  Company Number: JP-ASTRAZENECA-240108651_013120_P_1

PATIENT
  Age: 79 Year
  Sex: Male
  Weight: 46 kg

DRUGS (10)
  1. DURVALUMAB [Suspect]
     Active Substance: DURVALUMAB
     Indication: Bile duct cancer
     Dosage: 1500 MILLIGRAM, Q3W
     Dates: start: 20230117, end: 20231128
  2. DURVALUMAB [Suspect]
     Active Substance: DURVALUMAB
     Dosage: 1500 MILLIGRAM, Q4W
     Dates: start: 20230117, end: 20231128
  3. GEMCITABINE [Suspect]
     Active Substance: GEMCITABINE
     Indication: Bile duct cancer
     Dates: start: 20230117, end: 20230117
  4. GEMCITABINE [Suspect]
     Active Substance: GEMCITABINE
     Dates: start: 20230131, end: 20231031
  5. CISPLATIN [Suspect]
     Active Substance: CISPLATIN
     Indication: Bile duct cancer
     Dates: start: 20230117, end: 20230117
  6. CISPLATIN [Suspect]
     Active Substance: CISPLATIN
     Dates: start: 20230131, end: 20230131
  7. LEVOTHYROXINE [Concomitant]
     Active Substance: LEVOTHYROXINE
     Dates: start: 20230314, end: 20240124
  8. PREDONINE [Concomitant]
     Active Substance: PREDNISOLONE
     Dates: start: 20240109, end: 20240124
  9. PREDONINE [Concomitant]
     Active Substance: PREDNISOLONE
     Dates: start: 20231225, end: 20240108
  10. SOLU-MEDROL [Concomitant]
     Active Substance: METHYLPREDNISOLONE SODIUM SUCCINATE
     Dates: start: 20231222, end: 20231224

REACTIONS (4)
  - Interstitial lung disease [Recovered/Resolved with Sequelae]
  - Hypothyroidism [Not Recovered/Not Resolved]
  - Pneumonia aspiration [Fatal]
  - Off label use [Unknown]

NARRATIVE: CASE EVENT DATE: 20230314
